FAERS Safety Report 11099967 (Version 4)
Quarter: 2016Q1

REPORT INFORMATION
  Report Type: Spontaneous
  Country: US (occurrence: US)
  Receive Date: 20150508
  Receipt Date: 20160120
  Transmission Date: 20160525
  Serious: Yes (Other)
  Sender: FDA-Public Use
  Company Number: US-PFIZER INC-2015155851

PATIENT
  Age: 56 Year
  Sex: Female
  Weight: 76 kg

DRUGS (8)
  1. PROGESTERONE. [Concomitant]
     Active Substance: PROGESTERONE
     Dosage: 100 MG
  2. XELJANZ [Suspect]
     Active Substance: TOFACITINIB CITRATE
     Indication: RHEUMATOID ARTHRITIS
     Dosage: 5 MG, 2X/DAY
     Route: 048
     Dates: end: 201510
  3. SULFASALAZINE. [Concomitant]
     Active Substance: SULFASALAZINE
     Dosage: UNK
  4. PRILOSEC [Concomitant]
     Active Substance: OMEPRAZOLE MAGNESIUM
     Dosage: 20 MG
  5. CALCIUM + VIT D [Concomitant]
     Active Substance: CALCIUM\VITAMIN D
     Dosage: UNK
  6. HYDROCHLOROTHIAZIDE/LISINOPRIL [Concomitant]
     Dosage: LISINOPRIL: 20; HYDROCHLOROTHIAZIDE: 12.5
  7. PREDNISONE. [Concomitant]
     Active Substance: PREDNISONE
     Dosage: UNK
  8. LEVOTHYROXINE. [Concomitant]
     Active Substance: LEVOTHYROXINE
     Dosage: 25 ?G

REACTIONS (6)
  - Burning sensation [Unknown]
  - Rheumatoid arthritis [Unknown]
  - Sarcoidosis [Unknown]
  - Treatment failure [Unknown]
  - Condition aggravated [Unknown]
  - Fatigue [Unknown]

NARRATIVE: CASE EVENT DATE: 20150305
